FAERS Safety Report 7297499-2 (Version None)
Quarter: 2011Q1

REPORT INFORMATION
  Report Type: 
  Country: None (occurrence: None)
  Receive Date: 20110216
  Receipt Date: 20110211
  Transmission Date: 20110831
  Serious: Yes (Disabling, Other)
  Sender: FDA-Public Use
  Company Number: US-PFIZER INC-2011031561

PATIENT
  Sex: Female

DRUGS (1)
  1. LYRICA [Suspect]
     Indication: NEUROPATHY PERIPHERAL
     Dosage: 100 MG, 2X/DAY
     Route: 048

REACTIONS (12)
  - CAROTID ARTERY OCCLUSION [None]
  - VASCULAR OCCLUSION [None]
  - DRUG INEFFECTIVE [None]
  - PAIN IN EXTREMITY [None]
  - NASAL CONGESTION [None]
  - MYOCARDIAL INFARCTION [None]
  - ANAEMIA [None]
  - VISUAL ACUITY REDUCED [None]
  - DIABETES MELLITUS [None]
  - MEMORY IMPAIRMENT [None]
  - HYPERTENSION [None]
  - ANKYLOSING SPONDYLITIS [None]
